FAERS Safety Report 7426308-3 (Version None)
Quarter: 2011Q2

REPORT INFORMATION
  Report Type: 
  Country: None (occurrence: None)
  Receive Date: 20110420
  Receipt Date: 20110414
  Transmission Date: 20111010
  Serious: Yes (Hospitalization)
  Sender: FDA-Public Use
  Company Number: B0573947A

PATIENT
  Sex: Female
  Weight: 80 kg

DRUGS (3)
  1. MELPHALAN [Suspect]
     Indication: MULTIPLE MYELOMA
     Dosage: 8MG PER DAY
     Route: 065
     Dates: start: 20080916
  2. LENALIDOMIDE [Suspect]
     Indication: MULTIPLE MYELOMA
     Dosage: 7.5MG PER DAY
     Route: 048
     Dates: start: 20080916
  3. PREDNISONE [Suspect]
     Indication: MULTIPLE MYELOMA
     Dosage: 170MG PER DAY
     Route: 065
     Dates: start: 20080916

REACTIONS (3)
  - COUGH [None]
  - BRONCHITIS [None]
  - PYREXIA [None]
